FAERS Safety Report 9961706 (Version 1)
Quarter: 2014Q1

REPORT INFORMATION
  Report Type: Report from Study
  Country: US (occurrence: US)
  Receive Date: 20140305
  Receipt Date: 20140305
  Transmission Date: 20141002
  Serious: No
  Sender: FDA-Public Use
  Company Number: US-ABBVIE-13P-163-1111203-00

PATIENT
  Age: 35 Year
  Sex: Female
  Weight: 69.92 kg

DRUGS (3)
  1. HUMIRA [Suspect]
     Indication: CROHN^S DISEASE
     Dosage: LOADING DOSE
     Route: 058
     Dates: start: 201305, end: 201305
  2. HUMIRA [Suspect]
     Dosage: 2 WEEKS LATER
     Route: 058
     Dates: start: 2013, end: 2013
  3. HUMIRA [Suspect]
     Dosage: 4 WEEKS AFTER 160 MG DOSE
     Route: 058
     Dates: start: 2013

REACTIONS (1)
  - Urticaria [Not Recovered/Not Resolved]
